FAERS Safety Report 16931425 (Version 1)
Quarter: 2019Q4

REPORT INFORMATION
  Report Type: Spontaneous
  Country: CA (occurrence: CA)
  Receive Date: 20191017
  Receipt Date: 20191017
  Transmission Date: 20200122
  Serious: Yes (Other)
  Sender: FDA-Public Use
  Company Number: CA-TEVA-2019-CA-1123220

PATIENT
  Age: 72 Year
  Sex: Male

DRUGS (1)
  1. ZOLEDRONIC ACID MONOHYDRATE [Suspect]
     Active Substance: ZOLEDRONIC ACID
     Indication: PRODUCT USED FOR UNKNOWN INDICATION
     Route: 042

REACTIONS (3)
  - Rib fracture [Unknown]
  - Pneumothorax [Unknown]
  - Fall [Unknown]
